FAERS Safety Report 9110079 (Version 2)
Quarter: 2013Q1

REPORT INFORMATION
  Report Type: Report from Study
  Country: CA (occurrence: CA)
  Receive Date: 20130222
  Receipt Date: 20130226
  Transmission Date: 20140127
  Serious: Yes (Hospitalization)
  Sender: FDA-Public Use
  Company Number: CA-ROCHE-1193752

PATIENT
  Age: 70 Year
  Sex: Female
  Weight: 63 kg

DRUGS (17)
  1. RITUXAN [Suspect]
     Indication: PEMPHIGUS
     Route: 042
     Dates: start: 20130206
  2. MYCOPHENOLATE [Concomitant]
  3. PANTOLOC [Concomitant]
  4. PLAVIX [Concomitant]
  5. ATACAND [Concomitant]
  6. NORVASC [Concomitant]
  7. EZETROL [Concomitant]
  8. PROTRIN DF [Concomitant]
  9. NITROSTAT [Concomitant]
  10. REFRESH TEARS [Concomitant]
  11. BENZYDAMINE [Concomitant]
  12. RESTORALAX [Concomitant]
  13. SEREVENT [Concomitant]
  14. VENTOLIN [Concomitant]
  15. DIPHENHYDRAMINE HCL [Concomitant]
     Indication: PREMEDICATION
     Route: 048
     Dates: start: 20130206
  16. ACETAMINOFEN [Concomitant]
     Indication: PREMEDICATION
     Route: 048
     Dates: start: 20130206
  17. METHYLPREDNISOLONE [Concomitant]
     Indication: PREMEDICATION
     Route: 042
     Dates: start: 20130206

REACTIONS (1)
  - Rectal haemorrhage [Recovered/Resolved]
